FAERS Safety Report 4868808-6 (Version None)
Quarter: 2005Q4

REPORT INFORMATION
  Report Type: 
  Country: None (occurrence: None)
  Receive Date: 20051229
  Receipt Date: 20051212
  Transmission Date: 20060501
  Serious: Yes (Other)
  Sender: FDA-Public Use
  Company Number: US-ABBOTT-05P-163-0319284-00

PATIENT
  Sex: Female
  Weight: 54.026 kg

DRUGS (7)
  1. HUMIRA [Suspect]
     Indication: RHEUMATOID ARTHRITIS
     Route: 058
     Dates: start: 20051013, end: 20051115
  2. PREDNISONE 50MG TAB [Concomitant]
     Indication: RHEUMATOID ARTHRITIS
     Route: 048
  3. PRENATAL VITAMINS [Concomitant]
     Indication: VITAMIN SUPPLEMENTATION
     Route: 048
  4. CELECOXIB [Concomitant]
     Indication: RHEUMATOID ARTHRITIS
     Route: 048
  5. PARACETAMOL [Concomitant]
     Indication: PAIN
     Route: 048
  6. LUNESTA [Concomitant]
     Indication: INSOMNIA
     Route: 048
     Dates: start: 20051001
  7. ZALEPLON [Concomitant]
     Indication: INSOMNIA
     Route: 048
     Dates: start: 20051001

REACTIONS (3)
  - LEUKOCYTOCLASTIC VASCULITIS [None]
  - LUPUS-LIKE SYNDROME [None]
  - PERIVASCULAR DERMATITIS [None]
